FAERS Safety Report 7461431-9 (Version None)
Quarter: 2011Q2

REPORT INFORMATION
  Report Type: 
  Country: None (occurrence: None)
  Receive Date: 20110506
  Receipt Date: 20110321
  Transmission Date: 20111010
  Serious: Yes (Hospitalization, Other)
  Sender: FDA-Public Use
  Company Number: US-BAYER-201029764NA

PATIENT
  Age: 40 Year
  Sex: Female
  Weight: 52.154 kg

DRUGS (12)
  1. YAZ [Suspect]
     Indication: CONTRACEPTION
     Dosage: UNK
     Route: 048
     Dates: start: 20050101, end: 20090901
  2. DITROPAN [Concomitant]
     Indication: HYPERTONIC BLADDER
  3. ALBUTEROL [Concomitant]
  4. SINGULAIR [Concomitant]
     Indication: ASTHMA
  5. EFFEXOR [Concomitant]
  6. FRAGMIN [Concomitant]
     Dosage: UNK
     Dates: start: 20090801
  7. YASMIN [Suspect]
     Indication: PRODUCT USED FOR UNKNOWN INDICATION
     Dosage: UNK
     Route: 048
     Dates: start: 20050101, end: 20090901
  8. IMITREX [Concomitant]
     Indication: HEADACHE
     Dosage: 50 MG, UNK
     Dates: start: 20080707
  9. ASPIRIN [Concomitant]
     Dosage: UNK
     Dates: start: 20090801
  10. YAZ [Suspect]
     Indication: PREMENSTRUAL SYNDROME
  11. ROCEPHIN [Concomitant]
     Dosage: UNK
     Dates: start: 20090819
  12. YAZ [Suspect]
     Indication: ACNE
     Dosage: UNK
     Dates: start: 20050101, end: 20090901

REACTIONS (6)
  - CHOLECYSTITIS CHRONIC [None]
  - ABDOMINAL PAIN UPPER [None]
  - GALLBLADDER PAIN [None]
  - TRANSVERSE SINUS THROMBOSIS [None]
  - CEREBROVASCULAR ACCIDENT [None]
  - SUPERIOR SAGITTAL SINUS THROMBOSIS [None]
